FAERS Safety Report 7261838-9 (Version None)
Quarter: 2011Q1

REPORT INFORMATION
  Report Type: 
  Country: None (occurrence: None)
  Receive Date: 20110130
  Receipt Date: 20101210
  Transmission Date: 20110831
  Serious: No
  Sender: FDA-Public Use
  Company Number: US-ABBOTT-10P-163-0690846-00

PATIENT
  Sex: Female

DRUGS (25)
  1. DIOVAN HCT [Concomitant]
     Indication: BLOOD PRESSURE
     Dosage: 80/12.5 ONCE DAILY
  2. NASONEX [Concomitant]
     Indication: ASTHMA
  3. MULTI-VITAMIN [Concomitant]
     Indication: VITAMIN SUPPLEMENTATION
  4. ESTRADIOL [Concomitant]
     Indication: OESTROGEN REPLACEMENT THERAPY
  5. TRAMADOL HCL [Concomitant]
     Indication: PAIN
  6. FLEXERIL [Concomitant]
     Indication: FIBROMYALGIA
  7. RESTASIS [Concomitant]
     Indication: DRY EYE
     Dosage: 2-3 WEEKLY
  8. VITALIN HCH [Concomitant]
     Indication: ASTHMA
     Dosage: AS NEEDED
  9. MAGNESIUM [Concomitant]
     Indication: MINERAL SUPPLEMENTATION
  10. PRESSER VISION [Concomitant]
     Indication: VITAMIN SUPPLEMENTATION
  11. VITAMIN B-12 [Concomitant]
     Indication: VITAMIN SUPPLEMENTATION
  12. OMEPRAZOLE [Concomitant]
     Indication: GASTROOESOPHAGEAL REFLUX DISEASE
  13. DIOXAPAN HCK [Concomitant]
     Indication: ANXIETY
     Dosage: 1-3 DAILY
  14. VIT B6 [Concomitant]
     Indication: VITAMIN SUPPLEMENTATION
  15. VOLTAREN [Concomitant]
     Indication: OSTEOARTHRITIS
  16. SINGULAIR [Concomitant]
     Indication: ASTHMA
  17. VIT E [Concomitant]
     Indication: VITAMIN SUPPLEMENTATION
  18. LUTEIN [Concomitant]
     Indication: SUPPLEMENTATION THERAPY
  19. SYMBICORT [Concomitant]
     Indication: ASTHMA
  20. FISH OIL [Concomitant]
     Indication: SUPPLEMENTATION THERAPY
  21. FOLIC ACID [Concomitant]
     Indication: SUPPLEMENTATION THERAPY
  22. FLAX SEED [Concomitant]
     Indication: SUPPLEMENTATION THERAPY
  23. VIT D [Concomitant]
     Indication: VITAMIN SUPPLEMENTATION
  24. HUMIRA [Suspect]
     Indication: RHEUMATOID ARTHRITIS
     Dates: start: 20101130
  25. VIT C [Concomitant]
     Indication: VITAMIN SUPPLEMENTATION

REACTIONS (7)
  - INFLUENZA LIKE ILLNESS [None]
  - HEADACHE [None]
  - PARAESTHESIA [None]
  - JOINT RANGE OF MOTION DECREASED [None]
  - PANIC REACTION [None]
  - ARTHRALGIA [None]
  - MUSCULAR WEAKNESS [None]
